FAERS Safety Report 8236988-0 (Version None)
Quarter: 2012Q1

REPORT INFORMATION
  Report Type: 
  Country: None (occurrence: None)
  Receive Date: 20120327
  Receipt Date: 20120320
  Transmission Date: 20120608
  Serious: Yes (Other)
  Sender: FDA-Public Use
  Company Number: PHEH2009US02711

PATIENT
  Sex: Female
  Weight: 78.458 kg

DRUGS (20)
  1. CYMBALTA [Concomitant]
  2. KADIAN ^KNOLL^ [Concomitant]
  3. ESTROGEN NOS [Concomitant]
     Dosage: 1 MG, QD
     Route: 048
  4. DARVOCET-N 50 [Concomitant]
     Dosage: 2 DF, Q6H
  5. PREVACID [Concomitant]
     Dosage: 15 MG, QD
  6. ZELNORM                                 /CAN/ [Concomitant]
  7. AREDIA [Suspect]
     Indication: OSTEOPOROSIS
     Dosage: 90 MG, QMO
     Dates: start: 19950101, end: 20010101
  8. INTERFERON [Concomitant]
  9. DILAUDID [Concomitant]
  10. COMPAZINE [Concomitant]
  11. ZOMETA [Suspect]
     Dosage: 4 MG, QMO
     Route: 042
     Dates: start: 19970401, end: 20040915
  12. FLOMAX [Concomitant]
  13. ROCEPHIN [Concomitant]
  14. ALLEGRA [Concomitant]
  15. SINGULAIR [Concomitant]
  16. AMITRIPTYLINE HCL [Concomitant]
     Dosage: 150 MG, QD
  17. DILANTIN [Concomitant]
     Dosage: 130 MG, BID
  18. LYRICA [Concomitant]
  19. GLEEVEC [Concomitant]
  20. COUMADIN [Concomitant]
     Dosage: 5 MG, QD

REACTIONS (100)
  - DYSURIA [None]
  - CHOLECYSTITIS [None]
  - SPINAL OSTEOARTHRITIS [None]
  - ARRHYTHMIA [None]
  - HOT FLUSH [None]
  - VISION BLURRED [None]
  - BONE LOSS [None]
  - ANXIETY DISORDER [None]
  - SCOLIOSIS [None]
  - LYMPHADENOPATHY [None]
  - DEAFNESS [None]
  - DECREASED APPETITE [None]
  - GASTRITIS [None]
  - DEHYDRATION [None]
  - CONSTIPATION [None]
  - DIARRHOEA [None]
  - PAIN [None]
  - ORAL DISORDER [None]
  - GINGIVAL ABSCESS [None]
  - CONVULSION [None]
  - OSTEOPOROSIS [None]
  - BONE PAIN [None]
  - CHOLESTEATOMA [None]
  - ENDOMETRIOSIS [None]
  - TRYPTASE INCREASED [None]
  - PRURITUS [None]
  - FOOT FRACTURE [None]
  - HYDRONEPHROSIS [None]
  - OSTEONECROSIS [None]
  - BACK PAIN [None]
  - NECK PAIN [None]
  - ODYNOPHAGIA [None]
  - PHOTOPHOBIA [None]
  - NEURALGIA [None]
  - DEFORMITY [None]
  - TOOTH LOSS [None]
  - PAIN IN JAW [None]
  - OBSTRUCTIVE UROPATHY [None]
  - ATELECTASIS [None]
  - HERPES ZOSTER [None]
  - PLEURAL EFFUSION [None]
  - RESTLESS LEGS SYNDROME [None]
  - AORTIC ARTERIOSCLEROSIS [None]
  - NEPHROLITHIASIS [None]
  - OSTEOMYELITIS [None]
  - EMPHYSEMA [None]
  - COUGH [None]
  - DIZZINESS [None]
  - ECCHYMOSIS [None]
  - MASTOIDITIS [None]
  - LORDOSIS [None]
  - TYMPANIC MEMBRANE PERFORATION [None]
  - CHEST PAIN [None]
  - HIATUS HERNIA [None]
  - ABDOMINAL PAIN [None]
  - RHINITIS ALLERGIC [None]
  - INFECTION [None]
  - GINGIVAL ULCERATION [None]
  - EXPOSED BONE IN JAW [None]
  - GASTROOESOPHAGEAL REFLUX DISEASE [None]
  - OTITIS MEDIA CHRONIC [None]
  - PNEUMONIA [None]
  - ASTHMA [None]
  - SYNCOPE [None]
  - URINARY RETENTION [None]
  - CHOLELITHIASIS [None]
  - ARTHRALGIA [None]
  - NAUSEA [None]
  - DRY MOUTH [None]
  - DENTAL CARIES [None]
  - FLANK PAIN [None]
  - THROMBOPHLEBITIS SUPERFICIAL [None]
  - PULMONARY CONGESTION [None]
  - WITHDRAWAL SYNDROME [None]
  - ANAEMIA MACROCYTIC [None]
  - JAUNDICE [None]
  - NEUROPATHY PERIPHERAL [None]
  - DYSPNOEA [None]
  - UPPER RESPIRATORY TRACT INFECTION [None]
  - HYPOGLYCAEMIA [None]
  - FATIGUE [None]
  - DYSPHAGIA [None]
  - OSTEONECROSIS OF JAW [None]
  - GINGIVAL SWELLING [None]
  - PRIMARY SEQUESTRUM [None]
  - HAEMORRHOIDS [None]
  - CALCULUS URETERIC [None]
  - CERVICOBRACHIAL SYNDROME [None]
  - EUSTACHIAN TUBE DYSFUNCTION [None]
  - CARDIOMEGALY [None]
  - DEEP VEIN THROMBOSIS [None]
  - FIBROMA [None]
  - CYSTOCELE [None]
  - OSTEOPENIA [None]
  - PANCYTOPENIA [None]
  - SPLENOMEGALY [None]
  - GAMMA-GLUTAMYLTRANSFERASE INCREASED [None]
  - SINUSITIS [None]
  - HYPOAESTHESIA [None]
  - FALL [None]
